FAERS Safety Report 10099427 (Version 1)
Quarter: 2014Q2

REPORT INFORMATION
  Report Type: Spontaneous
  Country: JP (occurrence: JP)
  Receive Date: 20140423
  Receipt Date: 20140423
  Transmission Date: 20141212
  Serious: Yes (Other)
  Sender: FDA-Public Use
  Company Number: JP-PFIZER INC-2014111584

PATIENT
  Sex: Male

DRUGS (1)
  1. LYRICA [Suspect]
     Indication: PROCEDURAL PAIN
     Dosage: 150 MG OR 200 MG DAILY
     Route: 048
     Dates: start: 2011, end: 201403

REACTIONS (8)
  - Eczema [Unknown]
  - Aphagia [Unknown]
  - Pyrexia [Unknown]
  - Pain [Unknown]
  - Rhinitis [Unknown]
  - Pruritus [Unknown]
  - Heart rate increased [Unknown]
  - Photophobia [Unknown]
